FAERS Safety Report 8934563 (Version 2)
Quarter: 2013Q1

REPORT INFORMATION
  Report Type: Spontaneous
  Country: FR (occurrence: FR)
  Receive Date: 20121129
  Receipt Date: 20130218
  Transmission Date: 20140127
  Serious: Yes (Other)
  Sender: FDA-Public Use
  Company Number: FR-AMGEN-FRASP2012076668

PATIENT
  Age: 61 Year
  Sex: Female

DRUGS (7)
  1. ENBREL [Suspect]
     Indication: PRODUCT USED FOR UNKNOWN INDICATION
     Dosage: 50 MG, WEEKLY
     Dates: start: 201211
  2. LANTUS [Concomitant]
     Indication: TYPE 1 DIABETES MELLITUS
     Dosage: 1 DF, 2X/DAY
  3. NOVORAPID [Concomitant]
     Indication: TYPE 1 DIABETES MELLITUS
     Dosage: 1 DF, 3X/DAY
  4. COZAAR [Concomitant]
     Dosage: UNK
  5. CRESTOR [Concomitant]
     Dosage: UNK
  6. EZETROL [Concomitant]
     Dosage: UNK
  7. PLAVIX [Concomitant]
     Dosage: UNK

REACTIONS (1)
  - Hypoglycaemic coma [Recovered/Resolved]
